FAERS Safety Report 11455774 (Version 1)
Quarter: 2015Q3

REPORT INFORMATION
  Report Type: Spontaneous
  Country: US (occurrence: US)
  Receive Date: 20150831
  Receipt Date: 20150831
  Transmission Date: 20151125
  Serious: Yes (Death, Other)
  Sender: FDA-Public Use
  Company Number: US-GLAXOSMITHKLINE-US2015GSK123921

PATIENT
  Sex: Female

DRUGS (3)
  1. VOTRIENT [Suspect]
     Active Substance: PAZOPANIB HYDROCHLORIDE
     Indication: KAPOSI^S SARCOMA
     Dosage: 600 MG, QD
     Dates: start: 20140327
  2. ASPIRIN EC [Concomitant]
     Active Substance: ASPIRIN
  3. SENNA LAXATIVE [Concomitant]
     Active Substance: SENNOSIDES A AND B

REACTIONS (1)
  - Death [Fatal]
